FAERS Safety Report 6504487-X (Version None)
Quarter: 2009Q4

REPORT INFORMATION
  Report Type: 
  Country: None (occurrence: None)
  Receive Date: 20091217
  Receipt Date: 20091209
  Transmission Date: 20100525
  Serious: Yes (Death)
  Sender: FDA-Public Use
  Company Number: US-GILEAD-2009-0025378

PATIENT
  Sex: Female

DRUGS (15)
  1. LETAIRIS [Suspect]
     Indication: PULMONARY ARTERIAL HYPERTENSION
     Route: 048
  2. LETAIRIS [Suspect]
     Route: 048
     Dates: start: 20071001
  3. TADALAFIL [Concomitant]
  4. LASIX [Concomitant]
  5. METOPROLOL TARTRATE [Concomitant]
  6. SPIRONOLACTONE [Concomitant]
  7. DIGOXIN [Concomitant]
  8. ADVAIR DISKUS 100/50 [Concomitant]
  9. ALBUTEROL [Concomitant]
  10. LEXAPRO [Concomitant]
  11. LORAZEPAM [Concomitant]
  12. TYLENOL (CAPLET) [Concomitant]
  13. ASCORBIC ACID [Concomitant]
  14. IRON [Concomitant]
  15. ASPIRIN [Concomitant]

REACTIONS (1)
  - LEFT VENTRICULAR FAILURE [None]
